FAERS Safety Report 11811451 (Version 1)
Quarter: 2015Q4

REPORT INFORMATION
  Report Type: Spontaneous
  Country: US (occurrence: US)
  Receive Date: 20151208
  Receipt Date: 20151208
  Transmission Date: 20160305
  Serious: No
  Sender: FDA-Public Use
  Company Number: US-PFIZER INC-2015411121

PATIENT
  Age: 65 Year
  Sex: Female
  Weight: 68 kg

DRUGS (9)
  1. LYRICA [Suspect]
     Active Substance: PREGABALIN
     Indication: FIBROMYALGIA
     Dosage: 75 MG, 2X/DAY
     Dates: start: 201404
  2. VOLTAREN [Concomitant]
     Active Substance: DICLOFENAC SODIUM
     Dosage: 50 MG, 1X/DAY
  3. PANTOPRAZOLE [Concomitant]
     Active Substance: PANTOPRAZOLE SODIUM
     Dosage: UNK
  4. LYRICA [Suspect]
     Active Substance: PREGABALIN
     Dosage: 100 MG, 2X/DAY
  5. KLOR-CON [Concomitant]
     Active Substance: POTASSIUM CHLORIDE
     Dosage: UNK
  6. ATENOLOL. [Concomitant]
     Active Substance: ATENOLOL
     Indication: HEART RATE IRREGULAR
     Dosage: 25 MG, 1X/DAY
  7. VOLTAREN [Concomitant]
     Active Substance: DICLOFENAC SODIUM
     Dosage: 50 MG, 2X/DAY
  8. CYMBALTA [Concomitant]
     Active Substance: DULOXETINE HYDROCHLORIDE
     Indication: FIBROMYALGIA
     Dosage: 60 MG, 1X/DAY
  9. TRIAMTERENE AND HYDROCHLOROTHIAZIDE [Concomitant]
     Active Substance: HYDROCHLOROTHIAZIDE\TRIAMTERENE
     Dosage: [HYDROCHLOROTHIAZIDE 25MG]/[ TRIAMTERENE 37.5MG]

REACTIONS (11)
  - Weight increased [Not Recovered/Not Resolved]
  - Hypotension [Unknown]
  - Condition aggravated [Unknown]
  - Vision blurred [Not Recovered/Not Resolved]
  - Pain [Unknown]
  - Dizziness [Unknown]
  - Swelling face [Not Recovered/Not Resolved]
  - Peripheral swelling [Not Recovered/Not Resolved]
  - Asthenia [Unknown]
  - Fatigue [Unknown]
  - Drug effect incomplete [Unknown]
